FAERS Safety Report 13467521 (Version 1)
Quarter: 2017Q2

REPORT INFORMATION
  Report Type: Spontaneous
  Country: IN (occurrence: IN)
  Receive Date: 20170421
  Receipt Date: 20170421
  Transmission Date: 20170830
  Serious: Yes (Hospitalization)
  Sender: FDA-Public Use
  Company Number: IN-DEPOMED, INC.-IN-2017DEP000768

PATIENT
  Age: 76 Year
  Sex: Male
  Weight: 52 kg

DRUGS (5)
  1. PROPOFOL. [Suspect]
     Active Substance: PROPOFOL
     Indication: GENERAL ANAESTHESIA
     Dosage: 2 MG/KG, UNK
     Route: 008
  2. VECURONIUM [Suspect]
     Active Substance: VECURONIUM BROMIDE
     Indication: GENERAL ANAESTHESIA
     Dosage: 0.1 MG/KG, UNK
     Route: 008
  3. INSULIN [Concomitant]
     Active Substance: INSULIN NOS
     Indication: DIABETES MELLITUS
     Dosage: UNK
  4. FENTANYL. [Suspect]
     Active Substance: FENTANYL
     Indication: GENERAL ANAESTHESIA
     Dosage: 2 ?G/KG, UNK
     Route: 008
  5. ENALAPRIL [Concomitant]
     Active Substance: ENALAPRIL
     Indication: HYPERTENSION
     Dosage: UNK

REACTIONS (1)
  - Vasoplegia syndrome [Recovered/Resolved]
